FAERS Safety Report 7771022-8 (Version None)
Quarter: 2011Q3

REPORT INFORMATION
  Report Type: 
  Country: None (occurrence: None)
  Receive Date: 20110922
  Receipt Date: 20110121
  Transmission Date: 20111222
  Serious: No
  Sender: FDA-Public Use
  Company Number: US-ASTRAZENECA-2011SE04022

PATIENT
  Age: 42 Year
  Sex: Female

DRUGS (5)
  1. SEROQUEL [Suspect]
     Route: 048
     Dates: start: 20110114
  2. SEROQUEL [Suspect]
     Route: 048
     Dates: start: 20110114
  3. PRISTIQ [Concomitant]
     Indication: DEPRESSION
     Dates: start: 20101101
  4. SEROQUEL [Suspect]
     Indication: DEPRESSION
     Route: 048
     Dates: start: 20101101, end: 20101201
  5. SEROQUEL [Suspect]
     Indication: ANXIETY
     Route: 048
     Dates: start: 20101101, end: 20101201

REACTIONS (4)
  - DRUG INEFFECTIVE [None]
  - NO ADVERSE EVENT [None]
  - DRUG DOSE OMISSION [None]
  - THERAPEUTIC RESPONSE UNEXPECTED [None]
